FAERS Safety Report 14829987 (Version 1)
Quarter: 2018Q2

REPORT INFORMATION
  Report Type: Spontaneous
  Country: US (occurrence: US)
  Receive Date: 20180430
  Receipt Date: 20180430
  Transmission Date: 20180711
  Serious: Yes (Hospitalization, Other)
  Sender: FDA-Public Use
  Company Number: US-PFIZER INC-2018169736

PATIENT
  Age: 16 Year
  Sex: Female

DRUGS (2)
  1. DEPAKOTE [Concomitant]
     Active Substance: DIVALPROEX SODIUM
     Dosage: UNK
  2. PHENYTOIN. [Suspect]
     Active Substance: PHENYTOIN
     Dosage: UNK
     Route: 048

REACTIONS (4)
  - Off label use [Unknown]
  - Seizure [Not Recovered/Not Resolved]
  - Drug level decreased [Unknown]
  - Intentional product misuse [Unknown]
